FAERS Safety Report 6709124-7 (Version None)
Quarter: 2010Q2

REPORT INFORMATION
  Report Type: 
  Country: None (occurrence: None)
  Receive Date: 20100429
  Receipt Date: 20100413
  Transmission Date: 20101027
  Serious: Yes (Hospitalization)
  Sender: FDA-Public Use
  Company Number: THQ2009A03618

PATIENT
  Age: 60 Year
  Sex: Male

DRUGS (10)
  1. PIOGLITAZONE HCL [Suspect]
     Indication: TYPE 2 DIABETES MELLITUS
     Dosage: 45 MG (45 MG, 1 IN 1 D) PER ORAL
     Route: 048
     Dates: start: 20090130
  2. EXENATIDE LONG ACTING RELEASE 2 MG (ANTI-DIABETICS) [Suspect]
     Indication: TYPE 2 DIABETES MELLITUS
     Dosage: 2 MG (2 MG, 1 IN 1 WK) SUBCUTANEOUS
     Route: 058
     Dates: start: 20090129
  3. TORSEMIDE [Concomitant]
  4. SLOW-K [Concomitant]
  5. CAFFEINE, PARACETAMOL, DIPHENHYDRAMINE HYDROCHLORIDE, DEXTROPROPOXYPHE [Concomitant]
  6. LISINOPRIL [Concomitant]
  7. MOXYPEN (AMOXICILLIN TRIHYDRATE) [Concomitant]
  8. UNREPORTED MEDICATION (ALL OTHER THERAPEUTIC PRODUCTS) [Concomitant]
  9. ZEMAX 20 MG (LISINOPRIL) [Concomitant]
  10. ADCO AMOCRAN 1000 MG (AMOXICILLIN) [Concomitant]

REACTIONS (12)
  - BLOOD AMYLASE DECREASED [None]
  - BLOOD CREATINE PHOSPHOKINASE DECREASED [None]
  - BLOOD CREATININE INCREASED [None]
  - BLOOD POTASSIUM INCREASED [None]
  - BLOOD UREA INCREASED [None]
  - C-REACTIVE PROTEIN INCREASED [None]
  - FIBRIN D DIMER INCREASED [None]
  - GASTROENTERITIS [None]
  - NEUTROPHIL COUNT INCREASED [None]
  - PLATELET COUNT INCREASED [None]
  - TROPONIN T INCREASED [None]
  - WHITE BLOOD CELL COUNT INCREASED [None]
